FAERS Safety Report 8203792-9 (Version None)
Quarter: 2012Q1

REPORT INFORMATION
  Report Type: 
  Country: None (occurrence: None)
  Receive Date: 20120308
  Receipt Date: 20120301
  Transmission Date: 20120608
  Serious: Yes (Hospitalization)
  Sender: FDA-Public Use
  Company Number: 2011SP055252

PATIENT
  Age: 56 Year
  Sex: Female
  Weight: 58 kg

DRUGS (2)
  1. VIRAFERONPEG [Suspect]
     Indication: HEPATITIS C
     Dates: start: 20111018, end: 20111109
  2. REBETOL [Suspect]
     Indication: HEPATITIS C
     Dosage: 1000 MG;QD
     Dates: start: 20111018, end: 20111109

REACTIONS (6)
  - VITAMIN D DEFICIENCY [None]
  - HYPONATRAEMIA [None]
  - WEIGHT INCREASED [None]
  - ADRENAL INSUFFICIENCY [None]
  - HYPERPHAGIA [None]
  - HEPATIC STEATOSIS [None]
